FAERS Safety Report 4843363-5 (Version None)
Quarter: 2005Q4

REPORT INFORMATION
  Report Type: 
  Country: None (occurrence: None)
  Receive Date: 20051201
  Receipt Date: 20051107
  Transmission Date: 20060501
  Serious: Yes (Hospitalization, Other)
  Sender: FDA-Public Use
  Company Number: US-MERCK-0511USA01188

PATIENT
  Age: 57 Year
  Sex: Male
  Weight: 119 kg

DRUGS (14)
  1. VIOXX [Suspect]
     Indication: ARTHRITIS
     Route: 048
     Dates: start: 20030926, end: 20040624
  2. PRAVACHOL [Concomitant]
     Route: 065
  3. METOCLOPRAMIDE [Concomitant]
     Route: 065
  4. TRIAMTERENE [Concomitant]
     Route: 065
  5. NEXIUM [Concomitant]
     Route: 065
  6. CLIDINIUM BROMIDE [Concomitant]
     Route: 065
  7. FLOMAX (MORNIFLUMATE) [Concomitant]
     Route: 065
  8. VALIUM [Concomitant]
     Route: 065
  9. PAPAVERINE HYDROCHLORIDE [Concomitant]
     Route: 065
  10. FOLIC ACID [Concomitant]
     Route: 065
  11. PROPRANOLOL HYDROCHLORIDE [Concomitant]
     Route: 065
  12. DEPAKOTE [Concomitant]
     Route: 065
  13. ASPIRIN [Concomitant]
     Route: 065
  14. CLARINEX [Concomitant]
     Route: 065

REACTIONS (2)
  - CEREBROVASCULAR ACCIDENT [None]
  - HERNIA [None]
